FAERS Safety Report 9837074 (Version 2)
Quarter: 2014Q1

REPORT INFORMATION
  Report Type: Report from Study
  Country: US (occurrence: US)
  Receive Date: 20140123
  Receipt Date: 20140127
  Transmission Date: 20141002
  Serious: Yes (Death)
  Sender: FDA-Public Use
  Company Number: US-ROCHE-1337781

PATIENT
  Sex: Female
  Weight: 76.27 kg

DRUGS (20)
  1. AVASTIN [Suspect]
     Indication: PRODUCT USED FOR UNKNOWN INDICATION
     Dosage: DATE OF LAST DOSE: 12/AUG/2010
     Route: 065
  2. CISPLATIN [Concomitant]
  3. WELLBUTRIN SR [Concomitant]
     Route: 065
  4. NEXIUM [Concomitant]
     Route: 065
  5. GRANISETRON HCL [Concomitant]
     Dosage: AS DIRECTED
     Route: 065
  6. AMBIEN [Concomitant]
     Route: 065
  7. CYTOMEL [Concomitant]
     Dosage: 90 DAYS, 1 REFILLS
     Route: 065
  8. MARINOL (UNITED STATES) [Concomitant]
     Dosage: 1 TABLET
     Route: 065
  9. METOCLOPRAMIDE HCL [Concomitant]
     Route: 065
  10. MIRALAX [Concomitant]
  11. OXYCODONE HCL [Concomitant]
     Route: 065
  12. PRIMIDONE [Concomitant]
     Route: 065
  13. SYNTHROID [Concomitant]
     Route: 065
  14. TRAMADOL HCL [Concomitant]
     Dosage: 1 TABLET
     Route: 065
  15. WELLBUTRIN SR [Concomitant]
     Dosage: 90 DAYS, 3 REFILLS.
     Route: 065
  16. TOPOTECAN [Concomitant]
  17. CARBOPLATIN [Concomitant]
  18. TAXOL [Concomitant]
  19. DOXIL (UNITED STATES) [Concomitant]
  20. GEMZAR [Concomitant]

REACTIONS (1)
  - Peritoneal carcinoma metastatic [Fatal]
